FAERS Safety Report 6557163-1 (Version None)
Quarter: 2010Q1

REPORT INFORMATION
  Report Type: 
  Country: None (occurrence: None)
  Receive Date: 20100127
  Receipt Date: 20100127
  Transmission Date: 20100710
  Serious: Yes (Other)
  Sender: FDA-Public Use
  Company Number: None

PATIENT
  Age: 67 Year
  Sex: Female
  Weight: 58.9676 kg

DRUGS (1)
  1. ASTEPRO [Suspect]
     Indication: RHINITIS ALLERGIC
     Dosage: 1 SPRAY IN EACH NOSTRIL ONCE A DAY NASAL
     Route: 045
     Dates: start: 20100125, end: 20100125

REACTIONS (3)
  - DIZZINESS [None]
  - NAUSEA [None]
  - PAROSMIA [None]
